FAERS Safety Report 4439147-2 (Version None)
Quarter: 2004Q3

REPORT INFORMATION
  Report Type: 
  Country: None (occurrence: None)
  Receive Date: 20040831
  Receipt Date: 20040824
  Transmission Date: 20050211
  Serious: Yes (Other)
  Sender: FDA-Public Use
  Company Number: 002529

PATIENT
  Age: 55 Year
  Sex: Female

DRUGS (3)
  1. MEDROXYPROGESTERONE ACETATE [Suspect]
     Dates: start: 19930401, end: 20011001
  2. PROVERA [Suspect]
     Dates: start: 19930401, end: 20011001
  3. PREMARIN [Suspect]
     Dates: start: 19930401, end: 20011001

REACTIONS (1)
  - BREAST CANCER [None]
